FAERS Safety Report 4675545-X (Version None)
Quarter: 2005Q2

REPORT INFORMATION
  Report Type: 
  Country: None (occurrence: None)
  Receive Date: 20050527
  Receipt Date: 20050407
  Transmission Date: 20051028
  Serious: Yes (Other)
  Sender: FDA-Public Use
  Company Number: US-BRISTOL-MYERS SQUIBB COMPANY-12926408

PATIENT
  Age: 45 Year
  Sex: Male

DRUGS (4)
  1. ABILIFY [Suspect]
     Indication: MAJOR DEPRESSION
     Dosage: INCREASED TO 10 MG/DAY ON 07-APR-2005.
     Route: 048
     Dates: start: 20050210
  2. ABILIFY [Suspect]
     Indication: PSYCHOTIC DISORDER
     Dosage: INCREASED TO 10 MG/DAY ON 07-APR-2005.
     Route: 048
     Dates: start: 20050210
  3. KLONOPIN [Concomitant]
  4. DEPAKOTE [Concomitant]

REACTIONS (1)
  - PETIT MAL EPILEPSY [None]
